FAERS Safety Report 18228248 (Version 4)
Quarter: 2021Q3

REPORT INFORMATION
  Report Type: Report from Study
  Country: None (occurrence: IL)
  Receive Date: 20200903
  Receipt Date: 20210914
  Transmission Date: 20211014
  Serious: Yes (Death, Hospitalization, Other)
  Sender: FDA-Public Use
  Company Number: IL-ABBVIE-20K-082-3529698-00

PATIENT
  Sex: Male
  Weight: 72 kg

DRUGS (12)
  1. LOPRESOR [Concomitant]
     Active Substance: METOPROLOL
     Indication: HYPERTENSION
     Dates: start: 2001
  2. VENETOCLAX. [Suspect]
     Active Substance: VENETOCLAX
     Dosage: DISCONTINUATION DUE TO ADVERSE EVENT
     Route: 048
     Dates: start: 20200803, end: 20200808
  3. MIRO [Concomitant]
     Indication: DEPRESSION
     Dates: start: 2001
  4. FAMOTIDIN [Concomitant]
     Active Substance: FAMOTIDINE
     Indication: ULCER
     Dates: start: 2016
  5. VENETOCLAX. [Suspect]
     Active Substance: VENETOCLAX
     Indication: CHRONIC LYMPHOCYTIC LEUKAEMIA
     Route: 048
     Dates: start: 201806, end: 201811
  6. EXFORGE [Concomitant]
     Active Substance: AMLODIPINE BESYLATE\VALSARTAN
     Indication: HYPERTENSION
     Dates: start: 2001
  7. PAMID [Concomitant]
     Indication: HYPERTENSION
     Dates: start: 2001
  8. ALLORIL [Concomitant]
     Active Substance: ALLOPURINOL
     Indication: HYPOURICAEMIA
     Dates: start: 202007, end: 202008
  9. VENETOCLAX. [Suspect]
     Active Substance: VENETOCLAX
     Route: 048
     Dates: start: 20200713, end: 20200719
  10. VENETOCLAX. [Suspect]
     Active Substance: VENETOCLAX
     Route: 048
     Dates: start: 20200720, end: 20200726
  11. VENETOCLAX. [Suspect]
     Active Substance: VENETOCLAX
     Route: 048
     Dates: start: 20200727, end: 20200802
  12. SIMVACOR [Concomitant]
     Active Substance: SIMVASTATIN
     Indication: HYPERLIPIDAEMIA
     Dates: start: 2013

REACTIONS (3)
  - Squamous cell carcinoma of skin [Fatal]
  - Pneumonia [Fatal]
  - Thrombocytopenia [Unknown]

NARRATIVE: CASE EVENT DATE: 20200628
